FAERS Safety Report 8252667-8 (Version None)
Quarter: 2012Q2

REPORT INFORMATION
  Report Type: 
  Country: None (occurrence: None)
  Receive Date: 20120402
  Receipt Date: 20110804
  Transmission Date: 20120825
  Serious: No
  Sender: FDA-Public Use
  Company Number: US-ABBOTT-11P-163-0843969-00

PATIENT
  Age: 55 Year
  Sex: Male
  Weight: 101.24 kg

DRUGS (6)
  1. ANDROGEL [Suspect]
     Indication: HYPOGONADISM
     Dosage: PACKETS
     Route: 061
     Dates: start: 20100701, end: 20101001
  2. MYCARDIS HCTZ [Concomitant]
     Indication: HYPERTENSION
     Dosage: TAKES TABLET: 80MG/12.5 MG
     Route: 048
  3. ANDROGEL [Suspect]
     Dosage: PACKETS
     Route: 061
     Dates: start: 20101001
  4. PRAVASTATIN [Concomitant]
     Indication: BLOOD CHOLESTEROL INCREASED
     Route: 048
  5. GLUCOPHAGE [Concomitant]
     Indication: DIABETES MELLITUS
  6. ASPIRIN [Concomitant]
     Indication: CARDIOVASCULAR EVENT PROPHYLAXIS
     Route: 048

REACTIONS (1)
  - LETHARGY [None]
